FAERS Safety Report 21223889 (Version 1)
Quarter: 2022Q3

REPORT INFORMATION
  Report Type: Spontaneous
  Country: US (occurrence: US)
  Receive Date: 20220817
  Receipt Date: 20220817
  Transmission Date: 20221027
  Serious: Yes (Life-Threatening, Hospitalization)
  Sender: FDA-Public Use
  Company Number: None

PATIENT
  Age: 74 Year
  Sex: Female

DRUGS (7)
  1. DEXAMETHASONE [Suspect]
     Active Substance: DEXAMETHASONE
     Indication: COVID-19
     Dosage: UNK
     Route: 042
  2. REMDESIVIR [Suspect]
     Active Substance: REMDESIVIR
     Indication: COVID-19
     Dosage: UNK
     Route: 042
  3. NITROFURANTOIN [Suspect]
     Active Substance: NITROFURANTOIN
     Indication: Urinary tract infection
     Dosage: UNK
     Route: 065
  4. RIFAMYCIN [Suspect]
     Active Substance: RIFAMYCIN
     Indication: Tuberculosis
     Dosage: UNK, ADMINISTERED UNDER THE RIPE TREATMENT REGIMEN
     Route: 065
  5. PYRAZINAMIDE [Suspect]
     Active Substance: PYRAZINAMIDE
     Indication: Tuberculosis
     Dosage: UNK, ADMINISTERED UNDER THE RIPE TREATMENT REGIMEN
     Route: 065
  6. ISONIAZID [Concomitant]
     Active Substance: ISONIAZID
     Indication: Tuberculosis
     Dosage: UNK, ADMINISTERED UNDER THE RIPE TREATMENT REGIMEN
     Route: 065
  7. ETHAMBUTOL [Concomitant]
     Active Substance: ETHAMBUTOL HYDROCHLORIDE
     Indication: Tuberculosis
     Dosage: UNK, ADMINISTERED UNDER THE RIPE TREATMENT REGIMEN
     Route: 065

REACTIONS (2)
  - Tuberculosis [Recovering/Resolving]
  - Off label use [Unknown]
